FAERS Safety Report 10023153 (Version 1)
Quarter: 2014Q1

REPORT INFORMATION
  Report Type: Report from Study
  Country: US (occurrence: US)
  Receive Date: 20140320
  Receipt Date: 20140320
  Transmission Date: 20141002
  Serious: Yes (Other)
  Sender: FDA-Public Use
  Company Number: US-ROCHE-1362941

PATIENT
  Sex: Female
  Weight: 14.2 kg

DRUGS (6)
  1. NUTROPIN AQ [Suspect]
     Indication: GROWTH HORMONE DEFICIENCY
     Dosage: 10 MG/2 ML
     Route: 058
  2. ALBUTEROL [Concomitant]
     Route: 058
  3. SYNTHROID [Concomitant]
     Dosage: 30 TABLET
     Route: 048
  4. LANSOPRAZOLE [Concomitant]
     Route: 065
  5. CETRIZINE [Concomitant]
     Route: 065
  6. KEFLEX [Concomitant]

REACTIONS (4)
  - Respiratory syncytial virus infection [Unknown]
  - Pulmonary amyloidosis [Unknown]
  - Drug dose omission [Unknown]
  - Constipation [Unknown]
